FAERS Safety Report 17432023 (Version 4)
Quarter: 2020Q2

REPORT INFORMATION
  Report Type: Spontaneous
  Country: US (occurrence: US)
  Receive Date: 20200218
  Receipt Date: 20200603
  Transmission Date: 20200713
  Serious: Yes (Other)
  Sender: FDA-Public Use
  Company Number: US-PFIZER INC-2020071064

PATIENT
  Age: 61 Year
  Sex: Male

DRUGS (2)
  1. METFORMIN [Concomitant]
     Active Substance: METFORMIN HYDROCHLORIDE
     Indication: DIABETES MELLITUS
     Dosage: UNK
  2. LYRICA [Suspect]
     Active Substance: PREGABALIN
     Dosage: UNK
     Dates: start: 2019

REACTIONS (6)
  - Pain [Unknown]
  - Intervertebral disc protrusion [Unknown]
  - Tinnitus [Unknown]
  - Spinal fracture [Unknown]
  - Deafness [Unknown]
  - Constipation [Unknown]

NARRATIVE: CASE EVENT DATE: 2019
